FAERS Safety Report 8775360 (Version 2)
Quarter: 2012Q4

REPORT INFORMATION
  Report Type: 
  Country: US (occurrence: US)
  Receive Date: 20120910
  Receipt Date: 20120923
  Transmission Date: 20130627
  Serious: Yes (Other)
  Sender: FDA-Public Use
  Company Number: US-BIOGENIDEC-2012BI035050

PATIENT
  Age: 45 Year
  Sex: Female

DRUGS (1)
  1. AVONEX [Suspect]
     Indication: MULTIPLE SCLEROSIS
     Route: 030
     Dates: start: 20120224, end: 20120427

REACTIONS (9)
  - Crohn^s disease [Unknown]
  - Aphonia [Recovered/Resolved]
  - Oropharyngeal pain [Recovered/Resolved]
  - Fibromyalgia [Unknown]
  - Multiple sclerosis [Not Recovered/Not Resolved]
  - Memory impairment [Not Recovered/Not Resolved]
  - Pain [Recovered/Resolved]
  - Hyperhidrosis [Recovered/Resolved]
  - Influenza like illness [Recovered/Resolved]
